FAERS Safety Report 5907685-9 (Version None)
Quarter: 2008Q4

REPORT INFORMATION
  Report Type: 
  Country: None (occurrence: None)
  Receive Date: 20081003
  Receipt Date: 19981221
  Transmission Date: 20090506
  Serious: Yes (Death, Hospitalization)
  Sender: FDA-Public Use
  Company Number: DE-ROCHE-111229

PATIENT
  Sex: Male
  Weight: 86 kg

DRUGS (47)
  1. CEFTRIAXONE [Suspect]
     Indication: DRUG USE FOR UNKNOWN INDICATION
     Route: 042
     Dates: end: 19960825
  2. ALLOPURINOL [Suspect]
     Route: 048
     Dates: start: 19960823, end: 19960825
  3. ALLOPURINOL [Suspect]
     Route: 048
     Dates: start: 19960831
  4. GENTAMICIN [Suspect]
     Indication: DRUG USE FOR UNKNOWN INDICATION
     Route: 042
     Dates: end: 19960825
  5. ZYLORIC [Suspect]
     Route: 048
     Dates: end: 19960823
  6. ALLOPURINOL [Suspect]
     Indication: ACUTE MYELOMONOCYTIC LEUKAEMIA
     Route: 048
     Dates: start: 19960824, end: 19960826
  7. DAUNORUBICIN HCL [Suspect]
     Indication: ACUTE MYELOMONOCYTIC LEUKAEMIA
     Route: 042
     Dates: start: 19960824, end: 19960826
  8. DAUNORUBICIN HCL [Suspect]
     Route: 042
     Dates: start: 19960903, end: 19960905
  9. MERONEM [Suspect]
     Indication: DRUG USE FOR UNKNOWN INDICATION
     Route: 042
     Dates: start: 19960825
  10. VANCOMYCIN HYDROCHLORIDE [Suspect]
     Indication: DRUG USE FOR UNKNOWN INDICATION
     Route: 042
     Dates: start: 19960825, end: 19960827
  11. VANCOMYCIN HYDROCHLORIDE [Suspect]
     Route: 042
     Dates: start: 19980902, end: 19980902
  12. VANCOMYCIN HYDROCHLORIDE [Suspect]
     Route: 042
     Dates: start: 19960907, end: 19960907
  13. LASIX [Suspect]
     Route: 042
     Dates: start: 19960826, end: 19960828
  14. LASIX [Suspect]
     Route: 042
     Dates: start: 19960830
  15. MSR [Suspect]
     Indication: PAIN
     Route: 054
     Dates: start: 19960826, end: 19960830
  16. NOVALGIN [Suspect]
     Indication: PAIN
     Route: 048
     Dates: start: 19960826, end: 19960826
  17. DEXAMETHASONE TAB [Suspect]
     Indication: DRUG USE FOR UNKNOWN INDICATION
     Route: 042
     Dates: start: 19960829, end: 19960829
  18. DEXAMETHASONE TAB [Suspect]
     Route: 042
     Dates: start: 19960910, end: 19960910
  19. DEXAMETHASONE TAB [Suspect]
     Route: 042
     Dates: start: 19960913, end: 19960913
  20. MULTIBIONTA [Suspect]
     Route: 042
     Dates: start: 19960830
  21. VITINTRA [Suspect]
     Indication: DRUG USE FOR UNKNOWN INDICATION
     Route: 042
     Dates: start: 19960830
  22. CYTARABINE [Suspect]
     Indication: ACUTE MYELOMONOCYTIC LEUKAEMIA
     Route: 042
     Dates: start: 19960829, end: 19960905
  23. PROMETHAZINE [Suspect]
     Route: 042
     Dates: start: 19960830, end: 19960830
  24. PIMAFUCIN [Suspect]
     Route: 048
     Dates: start: 19960904, end: 19960907
  25. TRAMAL [Suspect]
     Indication: PAIN
     Route: 048
     Dates: start: 19960904, end: 19960904
  26. COTRIM [Suspect]
     Indication: DRUG USE FOR UNKNOWN INDICATION
     Route: 048
     Dates: start: 19960905, end: 19960905
  27. COTRIM [Suspect]
     Route: 048
     Dates: start: 19960909, end: 19960909
  28. CALCIMAGON [Suspect]
     Indication: HYPOCALCAEMIA
     Route: 048
     Dates: start: 19960905, end: 19960907
  29. NOSE OINTMENT NOS [Suspect]
     Indication: DRUG USE FOR UNKNOWN INDICATION
     Route: 045
     Dates: start: 19960906
  30. ACETAMINOPHEN [Suspect]
     Indication: DRUG USE FOR UNKNOWN INDICATION
     Route: 054
     Dates: start: 19960907, end: 19960910
  31. AMITRIPTYLINE HCL [Suspect]
     Indication: DEPRESSION
     Route: 042
     Dates: start: 19960907, end: 19960910
  32. ARA-CELL [Suspect]
     Indication: ACUTE MYELOMONOCYTIC LEUKAEMIA
     Route: 037
     Dates: start: 19960910, end: 19960913
  33. MTX INJECTION [Suspect]
     Indication: ACUTE MYELOMONOCYTIC LEUKAEMIA
     Route: 037
     Dates: start: 19960910, end: 19960913
  34. RIOPAN [Suspect]
     Route: 048
     Dates: start: 19960913, end: 19960913
  35. MUCOSOLVAN [Concomitant]
     Route: 042
     Dates: end: 19960823
  36. KALIUM-DURILES [Concomitant]
     Route: 048
     Dates: end: 19960823
  37. FAMOTIDINE [Concomitant]
     Indication: PROPHYLAXIS
     Route: 042
     Dates: start: 19960823
  38. TPN ELECTROLYTES IN PLASTIC CONTAINER [Concomitant]
     Indication: PARENTERAL NUTRITION
     Route: 042
     Dates: start: 19960823
  39. DIARROENT MONO [Concomitant]
     Route: 048
     Dates: start: 19960823, end: 19960907
  40. LIQUAEMIN INJ [Concomitant]
     Indication: THROMBOSIS PROPHYLAXIS
     Route: 042
     Dates: start: 19960823, end: 19960905
  41. STEROFUNDIN [Concomitant]
     Route: 042
     Dates: start: 19960823, end: 19960902
  42. ZOFRAN [Concomitant]
     Indication: NAUSEA
     Route: 042
     Dates: start: 19960823, end: 19960828
  43. AMPHOTERICIN B [Concomitant]
     Route: 048
     Dates: start: 19960823, end: 19960828
  44. POTASSIUM CHLORIDE [Concomitant]
     Indication: DIALYSIS
     Route: 042
     Dates: start: 19960823, end: 19960827
  45. CYTARABINE [Concomitant]
     Indication: ACUTE MYELOMONOCYTIC LEUKAEMIA
     Route: 042
     Dates: start: 19960824, end: 19960830
  46. SODIUM CHLORIDE [Concomitant]
     Indication: DEHYDRATION
     Route: 042
     Dates: start: 19960830
  47. LIPOFUNDIN [Concomitant]
     Indication: DRUG THERAPY
     Route: 042
     Dates: start: 19960830

REACTIONS (2)
  - DEATH [None]
  - STEVENS-JOHNSON SYNDROME [None]
